FAERS Safety Report 17141226 (Version 1)
Quarter: 2019Q4

REPORT INFORMATION
  Report Type: Spontaneous
  Country: TW (occurrence: TW)
  Receive Date: 20191211
  Receipt Date: 20191211
  Transmission Date: 20200122
  Serious: Yes (Hospitalization)
  Sender: FDA-Public Use
  Company Number: TW-CELGENEUS-TWN-20191106486

PATIENT
  Age: 74 Year
  Sex: Female
  Weight: 46.6 kg

DRUGS (15)
  1. PRACINOSTAT [Concomitant]
     Active Substance: PRACINOSTAT
     Indication: ACUTE MYELOID LEUKAEMIA
     Dosage: 60 MILLIGRAM
     Route: 048
     Dates: start: 20191017, end: 20191104
  2. CEFPIROME [Concomitant]
     Active Substance: CEFPIROME
     Indication: PNEUMONIA
     Dosage: 4000 MILLIGRAM
     Route: 041
     Dates: start: 20191014
  3. MUCAINE [Concomitant]
     Active Substance: ALUMINUM HYDROXIDE\DIMETHICONE\MAGNESIUM HYDROXIDE
     Indication: ANTACID THERAPY
     Route: 048
     Dates: start: 20191010
  4. VORICONAZOLE. [Concomitant]
     Active Substance: VORICONAZOLE
     Indication: PNEUMONIA
     Dosage: 200 MILLIGRAM
     Route: 048
     Dates: start: 20191008
  5. AZACITIDINE. [Suspect]
     Active Substance: AZACITIDINE
     Indication: ACUTE MYELOID LEUKAEMIA
     Dosage: 75 MILLIGRAM/SQ. METER
     Route: 058
     Dates: start: 20191017, end: 20191023
  6. AZACITIDINE. [Suspect]
     Active Substance: AZACITIDINE
     Dosage: 75 MILLIGRAM/SQ. METER
     Route: 058
     Dates: start: 20191113, end: 20191119
  7. LENOGRASTIM [Concomitant]
     Active Substance: LENOGRASTIM
     Indication: FEBRILE NEUTROPENIA
     Dosage: 250 MICROGRAM
     Route: 058
     Dates: start: 20191028, end: 20191029
  8. ACTEIN [Concomitant]
     Indication: CHRONIC SINUSITIS
     Dosage: FORM: GRANULE, 2 PACKAGES
     Route: 048
     Dates: start: 20190928
  9. CEFTIBUTEN. [Concomitant]
     Active Substance: CEFTIBUTEN
     Indication: PRODUCT USED FOR UNKNOWN INDICATION
     Dosage: 100 MILLIGRAM
     Route: 065
  10. ESOMEPRAZOLE. [Concomitant]
     Active Substance: ESOMEPRAZOLE MAGNESIUM
     Indication: PROPHYLAXIS AGAINST GASTROINTESTINAL ULCER
     Dosage: 40 MILLIGRAM
     Route: 048
     Dates: start: 20191012
  11. CHLORPHENIRAMINE MALEATE. [Concomitant]
     Active Substance: CHLORPHENIRAMINE MALEATE
     Indication: RASH
     Dosage: 15 MILLIGRAM
     Route: 041
     Dates: start: 20191011
  12. FLUOCINONIDE. [Concomitant]
     Active Substance: FLUOCINONIDE
     Indication: RASH
     Route: 061
     Dates: start: 20191012
  13. FAMCICLOVIR. [Concomitant]
     Active Substance: FAMCICLOVIR
     Indication: HERPES ZOSTER
     Dosage: 750 MILLIGRAM
     Route: 048
     Dates: start: 20191104
  14. SENNOSIDES. [Concomitant]
     Active Substance: SENNOSIDES
     Indication: CONSTIPATION
     Dosage: 24 MILLIGRAM
     Route: 048
     Dates: start: 20191002
  15. BENZYDAMINE HCL [Concomitant]
     Indication: PHARYNGITIS
     Route: 049
     Dates: start: 20190929

REACTIONS (2)
  - Febrile neutropenia [Recovered/Resolved]
  - Lymphadenitis bacterial [Recovered/Resolved]

NARRATIVE: CASE EVENT DATE: 20191109
